FAERS Safety Report 6107541-X (Version None)
Quarter: 2009Q1

REPORT INFORMATION
  Report Type: 
  Country: None (occurrence: None)
  Receive Date: 20090309
  Receipt Date: 20090226
  Transmission Date: 20090719
  Serious: Yes (Other)
  Sender: FDA-Public Use
  Company Number: PHHY2009JP03293

PATIENT
  Sex: Female
  Weight: 32 kg

DRUGS (3)
  1. ZOMETA [Suspect]
     Indication: METASTASES TO BONE
     Dosage: 4 MG, QMO
     Route: 042
     Dates: start: 20060501, end: 20070420
  2. ZOMETA [Suspect]
     Indication: BREAST CANCER
     Dosage: 4 MG, QMO
     Route: 042
     Dates: start: 20081121
  3. AREDIA [Suspect]
     Indication: METASTASES TO BONE
     Dosage: 90 MG, EVERY 4 WEEKS
     Route: 042
     Dates: start: 20050601, end: 20060401

REACTIONS (12)
  - ABSCESS DRAINAGE [None]
  - BONE DISORDER [None]
  - DYSGEUSIA [None]
  - GINGIVAL SWELLING [None]
  - HYPOAESTHESIA ORAL [None]
  - INFLAMMATION [None]
  - NERVE BLOCK [None]
  - ORAL SURGERY [None]
  - OSTEONECROSIS [None]
  - PAIN IN JAW [None]
  - SEQUESTRECTOMY [None]
  - SWELLING [None]
